FAERS Safety Report 6737741-7 (Version None)
Quarter: 2010Q2

REPORT INFORMATION
  Report Type: 
  Country: None (occurrence: None)
  Receive Date: 20100521
  Receipt Date: 20100521
  Transmission Date: 20101027
  Serious: No
  Sender: FDA-Public Use
  Company Number: None

PATIENT
  Sex: Female
  Weight: 78.9259 kg

DRUGS (1)
  1. XELODA [Suspect]
     Indication: COLON CANCER
     Dosage: 1500 MG BID PO INTERMITTENT
     Route: 048

REACTIONS (2)
  - KERATOCONJUNCTIVITIS SICCA [None]
  - VISUAL IMPAIRMENT [None]
